FAERS Safety Report 6046360-X (Version None)
Quarter: 2009Q1

REPORT INFORMATION
  Report Type: 
  Country: None (occurrence: None)
  Receive Date: 20090122
  Receipt Date: 20090115
  Transmission Date: 20090719
  Serious: Yes (Other)
  Sender: FDA-Public Use
  Company Number: CA-ASTRAZENECA-2009UW01431

PATIENT
  Age: 60 Year
  Sex: Male
  Weight: 91 kg

DRUGS (4)
  1. SYMBICORT [Suspect]
     Route: 055
  2. CRESTOR [Concomitant]
     Route: 048
  3. OMEPRAZOLE [Concomitant]
     Route: 048
  4. VENTOLIN [Concomitant]

REACTIONS (5)
  - GENERALISED OEDEMA [None]
  - HEART RATE INCREASED [None]
  - HYPERTENSION [None]
  - HYPOKINESIA [None]
  - WEIGHT INCREASED [None]
